FAERS Safety Report 4690153-2 (Version None)
Quarter: 2005Q2

REPORT INFORMATION
  Report Type: 
  Country: None (occurrence: None)
  Receive Date: 20050613
  Receipt Date: 20050531
  Transmission Date: 20051028
  Serious: Yes (Hospitalization)
  Sender: FDA-Public Use
  Company Number: 2005JP000648

PATIENT
  Age: 12 Year
  Sex: Male
  Weight: 38.6 kg

DRUGS (12)
  1. TACROLIMUS CAPSULES(TACROLIMUS) CAPSULE [Suspect]
     Indication: RENAL TRANSPLANT
     Dosage: SEE IMAGE
     Route: 048
     Dates: start: 20040511, end: 20040513
  2. TACROLIMUS CAPSULES(TACROLIMUS) CAPSULE [Suspect]
     Indication: RENAL TRANSPLANT
     Dosage: SEE IMAGE
     Route: 048
     Dates: start: 20040514, end: 20040517
  3. TACROLIMUS CAPSULES(TACROLIMUS) CAPSULE [Suspect]
     Indication: RENAL TRANSPLANT
     Dosage: SEE IMAGE
     Route: 048
     Dates: start: 20040518, end: 20040708
  4. TACROLIMUS CAPSULES(TACROLIMUS) CAPSULE [Suspect]
     Indication: RENAL TRANSPLANT
     Dosage: SEE IMAGE
     Route: 048
     Dates: start: 20040709
  5. CELLCEPT [Suspect]
     Indication: RENAL TRANSPLANT
     Dosage: 500.00  MR, ORAL
     Route: 048
     Dates: end: 20041014
  6. CELLCEPT [Suspect]
     Indication: RENAL TRANSPLANT
     Dosage: 500.00  MR, ORAL
     Route: 048
     Dates: start: 20041020
  7. METHYLPREDNISOLONE [Concomitant]
  8. ADALAT [Concomitant]
  9. OMEPRAZOLE [Concomitant]
  10. NORVASC   /DEN/ (AMLODIPINE BESILATE) TABLET [Concomitant]
  11. BAYASPIRIN TABLET [Concomitant]
  12. BLOPRESS (CANDESARTAN CILEXETIL) TABLET [Concomitant]

REACTIONS (1)
  - PAROTITIS [None]
